FAERS Safety Report 9436696 (Version 2)
Quarter: 2013Q3

REPORT INFORMATION
  Report Type: Spontaneous
  Country: BE (occurrence: BE)
  Receive Date: 20130802
  Receipt Date: 20130827
  Transmission Date: 20140515
  Serious: No
  Sender: FDA-Public Use
  Company Number: BE-JNJFOC-20130717370

PATIENT
  Age: 64 Year
  Sex: Female
  Weight: 108 kg

DRUGS (12)
  1. XARELTO [Suspect]
     Indication: CEREBROVASCULAR ACCIDENT PROPHYLAXIS
     Route: 048
     Dates: start: 20130530, end: 20130614
  2. XARELTO [Suspect]
     Indication: ATRIAL FIBRILLATION
     Route: 048
     Dates: start: 20130530, end: 20130614
  3. SIMVASTATINE [Suspect]
     Indication: DYSLIPIDAEMIA
     Route: 048
     Dates: start: 20130530, end: 20130614
  4. GLUCOPHAGE [Concomitant]
     Indication: TYPE 2 DIABETES MELLITUS
     Route: 048
  5. UNI DIAMICRON [Concomitant]
     Indication: TYPE 2 DIABETES MELLITUS
     Route: 048
  6. LANTUS [Concomitant]
     Indication: TYPE 2 DIABETES MELLITUS
     Route: 058
  7. TOREM [Concomitant]
     Indication: CARDIAC FAILURE
     Route: 048
  8. CO-DIOVANE [Concomitant]
     Indication: HYPERTENSION
     Dosage: 166/ 12.5 MG
     Route: 048
  9. EMCONCOR [Concomitant]
     Indication: ATRIAL FIBRILLATION
     Route: 048
  10. INUVAIR [Concomitant]
     Indication: ASTHMA
     Route: 055
  11. MOXONIDINE [Concomitant]
     Route: 065
  12. ALDACTONE [Concomitant]
     Indication: CARDIAC FAILURE
     Route: 048

REACTIONS (4)
  - Vasculitis [Recovering/Resolving]
  - Muscle tightness [Unknown]
  - Erythema [Unknown]
  - Rash papular [Recovering/Resolving]
